FAERS Safety Report 14567791 (Version 1)
Quarter: 2018Q1

REPORT INFORMATION
  Report Type: Spontaneous
  Country: US (occurrence: US)
  Receive Date: 20180223
  Receipt Date: 20180223
  Transmission Date: 20180509
  Serious: No
  Sender: FDA-Public Use
  Company Number: US-FERRINGPH-2017FE00060

PATIENT
  Age: 16 Year
  Sex: Female

DRUGS (2)
  1. STIMATE [Suspect]
     Active Substance: DESMOPRESSIN ACETATE
     Indication: VON WILLEBRAND^S DISEASE
     Dosage: 1 SPRAY INTO NOSTRIL
     Route: 045
     Dates: start: 20150525
  2. STIMATE [Suspect]
     Active Substance: DESMOPRESSIN ACETATE
     Dosage: 1 DF, DAILY FOR 3 DAYS
     Route: 045

REACTIONS (2)
  - Nausea [Recovered/Resolved]
  - Flushing [Recovered/Resolved]

NARRATIVE: CASE EVENT DATE: 20150525
